FAERS Safety Report 10076190 (Version 2)
Quarter: 2014Q2

REPORT INFORMATION
  Report Type: Spontaneous
  Country: US (occurrence: US)
  Receive Date: 20140414
  Receipt Date: 20140430
  Transmission Date: 20141212
  Serious: No
  Sender: FDA-Public Use
  Company Number: US-BAYER-2014-050240

PATIENT
  Age: 57 Year
  Sex: Female
  Weight: 95.24 kg

DRUGS (2)
  1. BAYER CHEWABLE LOW DOSE BABY ASPIRIN TABLET ORANGE [Suspect]
     Indication: CARDIOMEGALY
     Dosage: 1 DF, QD
     Route: 048
     Dates: start: 2011, end: 201201
  2. ALEVE CAPLET [Suspect]
     Route: 048

REACTIONS (4)
  - Reflux laryngitis [Recovered/Resolved]
  - Gastrointestinal pain [Recovered/Resolved]
  - Gastrointestinal pain [Recovered/Resolved]
  - Incorrect drug administration duration [None]
